FAERS Safety Report 6424034-0 (Version None)
Quarter: 2009Q4

REPORT INFORMATION
  Report Type: 
  Country: None (occurrence: None)
  Receive Date: 20091029
  Receipt Date: 20091019
  Transmission Date: 20100525
  Serious: Yes (Hospitalization)
  Sender: FDA-Public Use
  Company Number: 2009SP031843

PATIENT
  Age: 57 Year
  Sex: Male

DRUGS (3)
  1. CORICIDINFORT (CHLORPHENIRAMINE MALEATE/ ACETAMINOPHEN) [Suspect]
     Dosage: PO
     Route: 048
  2. TAMSULIN [Concomitant]
  3. COLD CARE [Concomitant]

REACTIONS (3)
  - HAEMATURIA [None]
  - INCORRECT DRUG ADMINISTRATION DURATION [None]
  - URINARY RETENTION [None]
